FAERS Safety Report 10050219 (Version 3)
Quarter: 2014Q2

REPORT INFORMATION
  Report Type: Spontaneous
  Country: US (occurrence: US)
  Receive Date: 20140401
  Receipt Date: 20140531
  Transmission Date: 20141212
  Serious: No
  Sender: FDA-Public Use
  Company Number: US-009507513-1403USA014203

PATIENT
  Age: 23 Year
  Sex: Female
  Weight: 81.63 kg

DRUGS (2)
  1. NEXPLANON [Suspect]
     Indication: CONTRACEPTION
     Dosage: UNK
     Route: 059
     Dates: start: 20140220, end: 20140326
  2. NEXPLANON [Suspect]
     Dosage: UNK
     Route: 059

REACTIONS (5)
  - Device expulsion [Recovered/Resolved]
  - Implant site erythema [Recovered/Resolved]
  - Implant site irritation [Recovered/Resolved]
  - Implant site swelling [Recovered/Resolved]
  - Implant site warmth [Recovered/Resolved]
